FAERS Safety Report 5698030-5 (Version None)
Quarter: 2008Q2

REPORT INFORMATION
  Report Type: 
  Country: None (occurrence: None)
  Receive Date: 20080404
  Receipt Date: 20080404
  Transmission Date: 20081010
  Serious: No
  Sender: FDA-Public Use
  Company Number: None

PATIENT
  Age: 61 Year
  Sex: Female
  Weight: 58.0604 kg

DRUGS (1)
  1. ENTOCORT EC [Suspect]
     Indication: GASTROINTESTINAL DISORDER
     Dosage: 3 MG CAPSULE  I TWICE A DAY PO
     Route: 048

REACTIONS (2)
  - EXTRASYSTOLES [None]
  - PALPITATIONS [None]
